FAERS Safety Report 8437529-5 (Version None)
Quarter: 2012Q2

REPORT INFORMATION
  Report Type: 
  Country: None (occurrence: None)
  Receive Date: 20120614
  Receipt Date: 20120420
  Transmission Date: 20120825
  Serious: Yes (Other)
  Sender: FDA-Public Use
  Company Number: US-AMGEN-USASP2012025111

PATIENT
  Sex: Female

DRUGS (14)
  1. COLCHICINE [Concomitant]
  2. KLOR-CON [Concomitant]
  3. HYDROXYZINE [Concomitant]
  4. OSCAL                              /00514701/ [Concomitant]
  5. VENLAFAXINE HCL [Concomitant]
  6. PLAQUENIL [Concomitant]
  7. PROLIA [Suspect]
     Indication: OSTEOPOROSIS POSTMENOPAUSAL
     Dates: start: 20111230
  8. MULTI-VITAMINS [Concomitant]
  9. OXYCODONE HCL [Concomitant]
  10. NEURONTIN [Concomitant]
  11. AMITRIPTYLINE HCL [Concomitant]
  12. MEDROL [Concomitant]
  13. METHOCARBAMOL [Concomitant]
  14. NEXIUM [Concomitant]

REACTIONS (6)
  - BLOOD CHOLESTEROL INCREASED [None]
  - PAIN IN EXTREMITY [None]
  - ORAL PAIN [None]
  - RHEUMATOID ARTHRITIS [None]
  - CYSTITIS [None]
  - CELLULITIS [None]
